FAERS Safety Report 5572520-8 (Version None)
Quarter: 2007Q4

REPORT INFORMATION
  Report Type: 
  Country: None (occurrence: None)
  Receive Date: 20071222
  Receipt Date: 20071211
  Transmission Date: 20080405
  Serious: Yes (Other)
  Sender: FDA-Public Use
  Company Number: US-PFIZER INC-2007105824

PATIENT
  Sex: Female

DRUGS (2)
  1. CHANTIX [Suspect]
  2. PAXIL [Suspect]

REACTIONS (3)
  - BIPOLAR DISORDER [None]
  - HALLUCINATION [None]
  - INSOMNIA [None]
